FAERS Safety Report 4286292-0 (Version None)
Quarter: 2004Q1

REPORT INFORMATION
  Report Type: 
  Country: None (occurrence: None)
  Receive Date: 20040129
  Receipt Date: 20030127
  Transmission Date: 20041129
  Serious: Yes (Hospitalization)
  Sender: FDA-Public Use
  Company Number: A001-002-005490

PATIENT
  Age: 89 Year
  Sex: Female
  Weight: 68.0396 kg

DRUGS (7)
  1. ARICEPT [Suspect]
     Indication: DEMENTIA
     Dosage: 5 MG, 1 IN 1 D; PER ORAL (SEE IMAGE)
     Route: 048
     Dates: start: 20020901, end: 20021001
  2. ARICEPT [Suspect]
     Indication: DEMENTIA
     Dosage: 5 MG, 1 IN 1 D; PER ORAL (SEE IMAGE)
     Route: 048
     Dates: start: 20021201
  3. NORVASC [Suspect]
     Indication: HYPERTENSION
     Dosage: 5 MG, PER ORAL
     Route: 048
  4. XALATAN (LATANAPROST) [Concomitant]
  5. TIMOLOL (TIMOLOL MALEATE) [Concomitant]
  6. LEVOTHYROXINE SODIUM [Concomitant]
  7. MULTIVITAMIN [Concomitant]

REACTIONS (2)
  - CONVULSION [None]
  - SYNCOPE [None]
